FAERS Safety Report 15212768 (Version 1)
Quarter: 2018Q3

REPORT INFORMATION
  Report Type: Spontaneous
  Country: US (occurrence: US)
  Receive Date: 20180730
  Receipt Date: 20180730
  Transmission Date: 20181010
  Serious: No
  Sender: FDA-Public Use
  Company Number: US-GALDERMA-US17009197

PATIENT
  Sex: Female
  Weight: 64.41 kg

DRUGS (11)
  1. LUTEIN [Concomitant]
     Active Substance: LUTEIN
  2. SIMVASTATIN. [Concomitant]
     Active Substance: SIMVASTATIN
  3. MINERAL SUPPLEMENT [Concomitant]
  4. HYDROCHLOROTHIAZIDE. [Concomitant]
     Active Substance: HYDROCHLOROTHIAZIDE
  5. RESTASIS EYE DROP BOTH EYES [Concomitant]
     Route: 047
  6. ASPIRIN. [Concomitant]
     Active Substance: ASPIRIN
  7. METRONIDAZOLE GEL, 1% [Suspect]
     Active Substance: METRONIDAZOLE
     Indication: ROSACEA
     Dosage: 1%
     Route: 061
     Dates: start: 2017
  8. METRONIDAZOLE GEL, 1% [Suspect]
     Active Substance: METRONIDAZOLE
     Dosage: 1%
     Route: 061
     Dates: start: 1997
  9. ZEAXANTHIN [Concomitant]
     Active Substance: ZEAXANTHIN
  10. QUINAPRIL. [Concomitant]
     Active Substance: QUINAPRIL
  11. WOMENS ONE A DAY [Concomitant]

REACTIONS (4)
  - Medication residue present [Recovered/Resolved]
  - Poor quality drug administered [Recovered/Resolved]
  - Inappropriate schedule of drug administration [Recovered/Resolved]
  - Intentional product misuse [Recovered/Resolved]
